FAERS Safety Report 7434244-1 (Version None)
Quarter: 2011Q2

REPORT INFORMATION
  Report Type: 
  Country: None (occurrence: None)
  Receive Date: 20110425
  Receipt Date: 20110419
  Transmission Date: 20111010
  Serious: No
  Sender: FDA-Public Use
  Company Number: US-PFIZER INC-2011038555

PATIENT
  Sex: Female

DRUGS (1)
  1. VERAPAMIL HCL [Suspect]
     Dosage: UNK

REACTIONS (6)
  - NAUSEA [None]
  - PRODUCT COATING ISSUE [None]
  - MALAISE [None]
  - DIZZINESS [None]
  - FEELING JITTERY [None]
  - PSYCHOMOTOR HYPERACTIVITY [None]
